FAERS Safety Report 6593000-7 (Version None)
Quarter: 2010Q1

REPORT INFORMATION
  Report Type: 
  Country: None (occurrence: None)
  Receive Date: 20100212
  Receipt Date: 20100126
  Transmission Date: 20100710
  Serious: Yes (Death, Life-Threatening, Hospitalization, Other)
  Sender: FDA-Public Use
  Company Number: CLOF-1000610

PATIENT
  Age: 72 Year
  Sex: Male
  Weight: 60 kg

DRUGS (29)
  1. EVOLTRA (CLOFARABINE) (SOLUTION FOR INFUSION, MG/M2 [Suspect]
     Indication: ACUTE MYELOID LEUKAEMIA
     Dosage: 20 MG/M2, QDX5, INTRAVENOUS, 35 MG, QDX5, INTRAVENOUS
     Route: 042
     Dates: start: 20090619, end: 20090623
  2. EVOLTRA (CLOFARABINE) (SOLUTION FOR INFUSION, MG/M2 [Suspect]
     Indication: ACUTE MYELOID LEUKAEMIA
     Dosage: 20 MG/M2, QDX5, INTRAVENOUS, 35 MG, QDX5, INTRAVENOUS
     Route: 042
     Dates: start: 20090731, end: 20090804
  3. DAUNORUBICIN (DAUNORUBICIN) INTRAVENOUS INFUSION, MG/M2 [Suspect]
     Indication: ACUTE MYELOID LEUKAEMIA
     Dosage: 50 MG/M2, INTRAVENOUS
     Route: 042
     Dates: start: 20090619, end: 20090623
  4. DAUNORUBICIN (DAUNORUBICIN) INTRAVENOUS INFUSION, MG/M2 [Suspect]
     Indication: ACUTE MYELOID LEUKAEMIA
     Dosage: 50 MG/M2, INTRAVENOUS
     Route: 042
     Dates: end: 20090804
  5. MYLOTARG [Suspect]
     Indication: ACUTE MYELOID LEUKAEMIA
     Dosage: 3 MG/M2, ONCE, INTRAVENOUS
     Route: 042
     Dates: start: 20090609, end: 20090619
  6. TRANEXAMIC ACID [Suspect]
     Indication: DRUG USE FOR UNKNOWN INDICATION
     Dosage: 1 G, INTRAVENOUS, 2 G
     Route: 042
     Dates: start: 20090624, end: 20090625
  7. TRANEXAMIC ACID [Suspect]
     Indication: DRUG USE FOR UNKNOWN INDICATION
     Dosage: 1 G, INTRAVENOUS, 2 G
     Route: 042
     Dates: start: 20090729, end: 20090801
  8. PIPERACILLIN SODIUM AND TAZOBACTAM SODIUM [Concomitant]
  9. ACYCLOVIR [Concomitant]
  10. ALLOPURINOL [Concomitant]
  11. NYSTATIN [Concomitant]
  12. SLOW-K [Concomitant]
  13. PARACETAMOL (PROMETHAZINE HYDROCHLORIDE) [Concomitant]
  14. VANCOMYCIN [Concomitant]
  15. PIPERACILLIN SODIUM AND TAZOBACTAM SODIUM [Concomitant]
  16. METOCLOPRAMIDE (METOCLOPRAMIDE HYDROCHLORIDE) [Concomitant]
  17. LOPERAMIDE (LOPERAMIDE OXIDE) [Concomitant]
  18. AMBISOME [Concomitant]
  19. ALTEPLASE (ALTEPLASE) [Concomitant]
  20. CORSDOYL (CHLORHEXIDINE GLUCONATE) [Concomitant]
  21. LANSOPRAZOLE [Concomitant]
  22. NASEPTIN (CHLORHEXIDINE HYDROCHLORIDE, NEOMYCIN SULFATE) CREAM [Concomitant]
  23. ACICLOVIR (ACICLOVIR SODIUM) [Concomitant]
  24. LEVOMEPROMAZINE  (LEVOMEPROMAZINE) [Concomitant]
  25. CYCLIZINE (CYCLIZINE) [Concomitant]
  26. MIDAZOLAM HCL [Concomitant]
  27. LORAZEPAM [Concomitant]
  28. SALBUTAMOL (SALBUTAMOL) [Concomitant]
  29. SALINE (SORBIC ACID) [Concomitant]

REACTIONS (22)
  - ABDOMINAL DISTENSION [None]
  - ACIDOSIS [None]
  - ACUTE MYELOID LEUKAEMIA [None]
  - ATRIAL FIBRILLATION [None]
  - BLOOD SODIUM DECREASED [None]
  - CARDIAC ARREST [None]
  - CONFUSIONAL STATE [None]
  - DIARRHOEA [None]
  - HYDROCELE [None]
  - HYPOKALAEMIA [None]
  - HYPOMAGNESAEMIA [None]
  - HYPOPHOSPHATAEMIA [None]
  - ILEUS [None]
  - MALNUTRITION [None]
  - MITRAL VALVE INCOMPETENCE [None]
  - NEUTROPENIC SEPSIS [None]
  - PLEURAL EFFUSION [None]
  - PURPURA [None]
  - RASH [None]
  - TRICUSPID VALVE INCOMPETENCE [None]
  - VENTRICULAR FIBRILLATION [None]
  - VENTRICULAR TACHYCARDIA [None]
